FAERS Safety Report 21053590 (Version 2)
Quarter: 2023Q2

REPORT INFORMATION
  Report Type: Spontaneous
  Country: CA (occurrence: CA)
  Receive Date: 20220707
  Receipt Date: 20230413
  Transmission Date: 20230721
  Serious: Yes (Other)
  Sender: FDA-Public Use
  Company Number: CA-SAMSUNG BIOEPIS-SB-2022-16100

PATIENT
  Age: 51 Year
  Sex: Male
  Weight: 70 kg

DRUGS (3)
  1. INFLIXIMAB [Suspect]
     Active Substance: INFLIXIMAB
     Indication: Crohn^s disease
     Route: 042
  2. INFLIXIMAB [Suspect]
     Active Substance: INFLIXIMAB
     Route: 042
  3. INFLIXIMAB [Suspect]
     Active Substance: INFLIXIMAB
     Route: 042

REACTIONS (9)
  - Crohn^s disease [Unknown]
  - Frustration tolerance decreased [Unknown]
  - Stress [Unknown]
  - Skin reaction [Unknown]
  - Condition aggravated [Unknown]
  - Exposure to SARS-CoV-2 [Unknown]
  - Inappropriate schedule of product administration [Unknown]
  - Off label use [Unknown]
  - Incorrect dose administered [Unknown]
